FAERS Safety Report 14366306 (Version 1)
Quarter: 2018Q1

REPORT INFORMATION
  Report Type: Spontaneous
  Country: MY (occurrence: MY)
  Receive Date: 20180109
  Receipt Date: 20180109
  Transmission Date: 20180509
  Serious: Yes (Other)
  Sender: FDA-Public Use
  Company Number: MY-ABBVIE-18P-101-2215027-00

PATIENT
  Sex: Female

DRUGS (2)
  1. EPILIM [Suspect]
     Active Substance: VALPROATE SODIUM
     Indication: MIGRAINE
  2. EPILIM [Suspect]
     Active Substance: VALPROATE SODIUM
     Indication: EPILEPSY
     Route: 048

REACTIONS (8)
  - Product use issue [Unknown]
  - Drug withdrawal convulsions [Unknown]
  - Insomnia [Unknown]
  - Fatigue [Unknown]
  - Thinking abnormal [Unknown]
  - Aura [Unknown]
  - Therapeutic response decreased [Unknown]
  - Hallucination [Unknown]
